FAERS Safety Report 8400399-5 (Version None)
Quarter: 2012Q2

REPORT INFORMATION
  Report Type: 
  Country: None (occurrence: None)
  Receive Date: 20120531
  Receipt Date: 20120523
  Transmission Date: 20120825
  Serious: Yes (Other)
  Sender: FDA-Public Use
  Company Number: GB-ABBOTT-12P-167-0929657-00

PATIENT
  Sex: Male
  Weight: 63.7 kg

DRUGS (4)
  1. CHOLESTYRAMINE [Concomitant]
     Indication: MALABSORPTION
     Dosage: DAILY
     Route: 048
     Dates: start: 20120101
  2. HUMIRA [Suspect]
     Indication: CROHN'S DISEASE
     Route: 058
     Dates: start: 20110914, end: 20120420
  3. AZATHIOPRINE [Concomitant]
     Indication: CROHN'S DISEASE
     Dosage: DAILY
     Route: 048
     Dates: start: 20100701
  4. HUMIRA [Suspect]
     Indication: CROHN'S DISEASE

REACTIONS (6)
  - INJECTION SITE INFLAMMATION [None]
  - INJECTION SITE SWELLING [None]
  - INJECTION SITE PAIN [None]
  - INJECTION SITE ERYTHEMA [None]
  - INJECTION SITE NODULE [None]
  - INJECTION SITE REACTION [None]
